FAERS Safety Report 18958469 (Version 1)
Quarter: 2021Q1

REPORT INFORMATION
  Report Type: Spontaneous
  Country: FR (occurrence: FR)
  Receive Date: 20210302
  Receipt Date: 20210302
  Transmission Date: 20210420
  Serious: Yes (Hospitalization)
  Sender: FDA-Public Use
  Company Number: FR-TEVA-2021-FR-1884395

PATIENT
  Age: 52 Year
  Sex: Male
  Weight: 85 kg

DRUGS (16)
  1. GAVISCON [Concomitant]
     Active Substance: ALUMINUM HYDROXIDE\MAGNESIUM CARBONATE
  2. NICARDIPINE (CHLORHYDRATE DE) [Concomitant]
     Active Substance: NICARDIPINE HYDROCHLORIDE
  3. TRAMADOL (CHLORHYDRATE DE) [Suspect]
     Active Substance: TRAMADOL HYDROCHLORIDE
     Indication: PAIN
     Dosage: 50MG
     Route: 048
     Dates: start: 20210127
  4. TRIATEC 5 MG, COMPRIME SECABLE [Concomitant]
     Dosage: SCORED
  5. ACUPAN [Concomitant]
     Active Substance: NEFOPAM HYDROCHLORIDE
     Indication: PAIN
     Dosage: 20MG
     Route: 048
     Dates: start: 20210127
  6. LOVENOX [Concomitant]
     Active Substance: ENOXAPARIN SODIUM
  7. ACUPAN [Suspect]
     Active Substance: NEFOPAM HYDROCHLORIDE
     Indication: PAIN
     Dosage: 20MG
     Route: 048
     Dates: start: 20210127
  8. ANAPEN [Concomitant]
  9. SYMBICORT [Concomitant]
     Active Substance: BUDESONIDE\FORMOTEROL FUMARATE DIHYDRATE
  10. VENTOLINE [Concomitant]
     Active Substance: ALBUTEROL
  11. BILASTINE [Concomitant]
     Active Substance: BILASTINE
  12. INEXIUM 40 MG, COMPRIME GASTRO?RESISTANT [Suspect]
     Active Substance: ESOMEPRAZOLE MAGNESIUM
     Indication: GASTROOESOPHAGEAL REFLUX DISEASE
     Dosage: 120MG
     Route: 048
     Dates: start: 20210119, end: 20210203
  13. MOVICOL [Concomitant]
     Active Substance: POLYETHYLENE GLYCOL 3350\POTASSIUM CHLORIDE\SODIUM BICARBONATE\SODIUM CHLORIDE
  14. DOLIPRANE [Concomitant]
     Active Substance: ACETAMINOPHEN
  15. INORIAL 20 MG, COMPRIME [Concomitant]
     Active Substance: BILASTINE
  16. DIFFU K, GELULE [Concomitant]
     Active Substance: POTASSIUM CHLORIDE

REACTIONS (3)
  - Hepatocellular injury [Not Recovered/Not Resolved]
  - Neutropenia [Not Recovered/Not Resolved]
  - Eosinophilia [Not Recovered/Not Resolved]

NARRATIVE: CASE EVENT DATE: 20210131
